FAERS Safety Report 6094515-0 (Version None)
Quarter: 2009Q1

REPORT INFORMATION
  Report Type: 
  Country: None (occurrence: None)
  Receive Date: 20090226
  Receipt Date: 20090216
  Transmission Date: 20090719
  Serious: Yes (Hospitalization, Other)
  Sender: FDA-Public Use
  Company Number: US-WYE-H08233809

PATIENT
  Sex: Female

DRUGS (2)
  1. EFFEXOR XR [Suspect]
     Route: 048
     Dates: start: 19990101, end: 20050101
  2. EFFEXOR XR [Suspect]
     Dosage: INCREASED TO 225 MG AT UNKNOWN INTERVALS
     Route: 048
     Dates: start: 20050101

REACTIONS (6)
  - CONNECTIVE TISSUE DISORDER [None]
  - HYPOXIA [None]
  - LUNG DISORDER [None]
  - PLEURITIC PAIN [None]
  - PULMONARY EMBOLISM [None]
  - RESPIRATORY FAILURE [None]
